FAERS Safety Report 4758665-0 (Version None)
Quarter: 2005Q3

REPORT INFORMATION
  Report Type: 
  Country: None (occurrence: None)
  Receive Date: 20050830
  Receipt Date: 20050830
  Transmission Date: 20060218
  Serious: Yes (Life-Threatening, Hospitalization, Disabling)
  Sender: FDA-Public Use
  Company Number: None

PATIENT
  Age: 49 Year
  Sex: Female
  Weight: 73.4827 kg

DRUGS (3)
  1. ORTHO EVRA [Suspect]
     Indication: PREMENSTRUAL SYNDROME
     Dosage: 1 PATCH PER WEEK
     Dates: start: 20040821, end: 20040910
  2. MOTRIN [Concomitant]
  3. BEXTRA [Concomitant]

REACTIONS (18)
  - ASTHENIA [None]
  - BACK PAIN [None]
  - CARDIAC DISORDER [None]
  - CHEST PAIN [None]
  - COMPUTERISED TOMOGRAM ABNORMAL [None]
  - CYANOSIS [None]
  - DEPRESSION [None]
  - DYSPNOEA [None]
  - ILIAC VEIN OCCLUSION [None]
  - ILIAC VEIN THROMBOSIS [None]
  - MUSCULAR WEAKNESS [None]
  - OEDEMA PERIPHERAL [None]
  - PAIN [None]
  - POST THROMBOTIC SYNDROME [None]
  - PULMONARY EMBOLISM [None]
  - VENA CAVA THROMBOSIS [None]
  - VENOUS OCCLUSION [None]
  - VENOUS THROMBOSIS [None]
